FAERS Safety Report 6154207-6 (Version None)
Quarter: 2009Q2

REPORT INFORMATION
  Report Type: 
  Country: None (occurrence: None)
  Receive Date: 20090414
  Receipt Date: 20090407
  Transmission Date: 20091009
  Serious: Yes (Life-Threatening)
  Sender: FDA-Public Use
  Company Number: GB-WYE-G03483809

PATIENT
  Age: 67 Year
  Sex: Female
  Weight: 59.5 kg

DRUGS (1)
  1. TAZOCIN [Suspect]
     Route: 042
     Dates: start: 20090225, end: 20090225

REACTIONS (5)
  - BLOOD PRESSURE DECREASED [None]
  - ERYTHEMA [None]
  - FEELING ABNORMAL [None]
  - RASH MACULAR [None]
  - TACHYCARDIA [None]
